FAERS Safety Report 16094682 (Version 3)
Quarter: 2019Q1

REPORT INFORMATION
  Report Type: Spontaneous
  Country: HU (occurrence: HU)
  Receive Date: 20190320
  Receipt Date: 20190326
  Transmission Date: 20190418
  Serious: Yes (Death, Hospitalization, Other)
  Sender: FDA-Public Use
  Company Number: PHHY2019HU062503

PATIENT
  Age: 78 Year
  Sex: Male
  Weight: 100 kg

DRUGS (6)
  1. HUMA-ZOLAMIDE [Concomitant]
     Indication: CARDIAC FAILURE
     Dosage: 250 MG, UNK
     Route: 065
  2. FURON [Concomitant]
     Active Substance: FUROSEMIDE
     Indication: CARDIAC FAILURE
     Dosage: 80-40-40 MG,
     Route: 065
     Dates: start: 2018
  3. RAMIPRIL. [Suspect]
     Active Substance: RAMIPRIL
     Indication: PRODUCT USED FOR UNKNOWN INDICATION
     Dosage: 1.25 MG, UNK
     Route: 065
     Dates: end: 20190303
  4. ENTRESTO [Suspect]
     Active Substance: SACUBITRIL\VALSARTAN
     Indication: CARDIAC FAILURE
     Dosage: 50 MG, BID (24/26 MG, 2X1 DAILY)
     Route: 048
     Dates: start: 20190306
  5. KALDYUM [Concomitant]
     Active Substance: POTASSIUM CHLORIDE
     Indication: PRODUCT USED FOR UNKNOWN INDICATION
     Dosage: 200 MG, UNK
     Route: 065
     Dates: start: 2018
  6. TALLITON [Concomitant]
     Active Substance: CARVEDILOL
     Indication: CARDIAC FAILURE
     Dosage: 3.75 MG, BID
     Route: 065

REACTIONS (9)
  - Mitral valve incompetence [Unknown]
  - Renal failure [Unknown]
  - Tricuspid valve incompetence [Unknown]
  - Death [Fatal]
  - Ejection fraction decreased [Unknown]
  - Hypotension [Unknown]
  - Malaise [Unknown]
  - Atrial fibrillation [Unknown]
  - Ischaemic cardiomyopathy [Unknown]

NARRATIVE: CASE EVENT DATE: 20190314
